FAERS Safety Report 8485884-2 (Version None)
Quarter: 2012Q3

REPORT INFORMATION
  Report Type: 
  Country: None (occurrence: None)
  Receive Date: 20120703
  Receipt Date: 20120621
  Transmission Date: 20120928
  Serious: Yes (Other)
  Sender: FDA-Public Use
  Company Number: AU-MYLANLABS-2012S1012835

PATIENT
  Age: 61 Year
  Sex: Male
  Weight: 70 kg

DRUGS (8)
  1. KETAMINE HCL [Suspect]
     Indication: MAJOR DEPRESSION
     Dosage: 300-600MG DAILY; RACEMIC PREPARATION TAKEN IN 3 DIVIDED DOSES
     Route: 048
     Dates: start: 20080501, end: 20090801
  2. EZETIMIBE [Concomitant]
     Route: 065
  3. FLECAINIDE ACETATE [Concomitant]
     Route: 065
  4. PHENELZINE SULFATE [Concomitant]
     Route: 065
  5. ATORVASTATIN [Concomitant]
     Route: 065
  6. FUROSEMIDE [Concomitant]
     Route: 065
  7. DIAZEPAM [Concomitant]
     Route: 065
  8. TAMSULOSIN HCL [Concomitant]
     Route: 065

REACTIONS (1)
  - CORNEAL OEDEMA [None]
